FAERS Safety Report 11235982 (Version 1)
Quarter: 2015Q3

REPORT INFORMATION
  Report Type: Spontaneous
  Country: US (occurrence: US)
  Receive Date: 20150702
  Receipt Date: 20150702
  Transmission Date: 20151125
  Serious: No
  Sender: FDA-Public Use
  Company Number: US-TAKEDA-2015TUS003011

PATIENT
  Sex: Female

DRUGS (4)
  1. CONTRAVE [Suspect]
     Active Substance: BUPROPION HYDROCHLORIDE\NALTREXONE HYDROCHLORIDE
     Indication: OVERWEIGHT
     Dosage: ONE TABLET, QD
     Route: 048
     Dates: start: 20141107, end: 20141114
  2. CONTRAVE [Suspect]
     Active Substance: BUPROPION HYDROCHLORIDE\NALTREXONE HYDROCHLORIDE
     Dosage: ONE TABLET, BID
     Route: 048
     Dates: start: 20141115, end: 20141122
  3. CONTRAVE [Suspect]
     Active Substance: BUPROPION HYDROCHLORIDE\NALTREXONE HYDROCHLORIDE
     Dosage: TWO TABLETS IN THE MORNING THEN TWO TABLETS IN THE EVENING
     Route: 048
     Dates: start: 20141201, end: 201502
  4. CONTRAVE [Suspect]
     Active Substance: BUPROPION HYDROCHLORIDE\NALTREXONE HYDROCHLORIDE
     Dosage: TWO TABLETS IN THE MORNING THEN ONE TABLET IN THE EVENING
     Route: 048
     Dates: start: 20141123, end: 20141130

REACTIONS (6)
  - Abdominal pain upper [Recovering/Resolving]
  - Nausea [Recovering/Resolving]
  - Constipation [Recovering/Resolving]
  - Dysuria [Recovering/Resolving]
  - Weight fluctuation [Recovering/Resolving]
  - Drug ineffective [Recovered/Resolved]
